FAERS Safety Report 20000589 (Version 2)
Quarter: 2021Q4

REPORT INFORMATION
  Report Type: Report from Study
  Country: FR (occurrence: FR)
  Receive Date: 20211026
  Receipt Date: 20211201
  Transmission Date: 20220303
  Serious: Yes (Disabling)
  Sender: FDA-Public Use
  Company Number: FR-CHUNICE-202100005

PATIENT

DRUGS (1)
  1. EYLEA [Suspect]
     Active Substance: AFLIBERCEPT
     Indication: Eye disorder prophylaxis
     Dosage: UNK
     Route: 031
     Dates: start: 20200221, end: 20210607

REACTIONS (1)
  - Scleral degeneration [Not Recovered/Not Resolved]

NARRATIVE: CASE EVENT DATE: 20210726
